FAERS Safety Report 7780612-8 (Version None)
Quarter: 2011Q3

REPORT INFORMATION
  Report Type: 
  Country: None (occurrence: None)
  Receive Date: 20110927
  Receipt Date: 20101013
  Transmission Date: 20111222
  Serious: No
  Sender: FDA-Public Use
  Company Number: US-BRISTOL-MYERS SQUIBB COMPANY-15301732

PATIENT
  Age: 84 Year
  Sex: Female
  Weight: 77 kg

DRUGS (5)
  1. AVAPRO [Suspect]
     Indication: HYPERTENSION
     Dosage: TOOK 3 PILLS
     Route: 048
     Dates: start: 20100920
  2. COSOPT [Concomitant]
     Dosage: COSOPT EYEDROPS
     Route: 047
  3. HYDROCHLOROTHIAZIDE [Concomitant]
  4. VITAMIN TAB [Concomitant]
  5. SIMVASTATIN [Concomitant]

REACTIONS (1)
  - DYSGEUSIA [None]
